FAERS Safety Report 6780343-7 (Version None)
Quarter: 2010Q2

REPORT INFORMATION
  Report Type: 
  Country: None (occurrence: None)
  Receive Date: 20100618
  Receipt Date: 20100611
  Transmission Date: 20101027
  Serious: Yes (Hospitalization)
  Sender: FDA-Public Use
  Company Number: US-AMGEN-QUU402233

PATIENT
  Sex: Male

DRUGS (5)
  1. ENBREL [Suspect]
     Indication: PSORIASIS
     Route: 058
     Dates: start: 20070209
  2. MOBIC [Concomitant]
  3. NEXIUM [Concomitant]
  4. SIMVASTATIN [Concomitant]
  5. PRINIVIL [Concomitant]

REACTIONS (5)
  - ARTHRITIS [None]
  - INJECTION SITE ERYTHEMA [None]
  - INJECTION SITE HAEMATOMA [None]
  - INJECTION SITE REACTION [None]
  - INJECTION SITE WARMTH [None]
